FAERS Safety Report 4600077-4 (Version None)
Quarter: 2005Q1

REPORT INFORMATION
  Report Type: 
  Country: None (occurrence: None)
  Receive Date: 20050303
  Receipt Date: 20050222
  Transmission Date: 20050727
  Serious: Yes (Hospitalization, Other)
  Sender: FDA-Public Use
  Company Number: FRWYE450723FEB05

PATIENT
  Age: 75 Year
  Sex: Female

DRUGS (13)
  1. BISOPROLOL FUMARATE [Suspect]
     Indication: ESSENTIAL HYPERTENSION
     Dosage: ORAL
     Route: 048
     Dates: end: 20041206
  2. CAPTEA (CAPTOPRIL/HYDROCHLOROTHIAZIDE, 0) [Suspect]
     Indication: ESSENTIAL HYPERTENSION
     Dosage: 0.5 DOSE 1X PER 1 DAY ORAL
     Route: 048
     Dates: end: 20041206
  3. DIAMICRON (GLICLAZIDE, , 0) [Suspect]
     Indication: DIABETES MELLITUS
     Dosage: ORAL
     Route: 048
     Dates: end: 20041206
  4. FELDENE [Suspect]
     Indication: BACK PAIN
     Dosage: IM
     Route: 030
     Dates: start: 20041202, end: 20041206
  5. FELDENE [Suspect]
     Indication: OSTEOARTHRITIS
     Dosage: IM
     Route: 030
     Dates: start: 20041202, end: 20041206
  6. PLAVIX [Suspect]
     Dosage: 1 DOSE 1X PER 1 DAY, ORAL
     Route: 048
     Dates: end: 20041206
  7. PROZAC [Suspect]
     Indication: DYSTHYMIC DISORDER
     Dosage: 20 MG 1X PER 1 DAY, ORAL
     Route: 048
  8. TANAKAN (GINKGO TREE LEAVES EXTRACT) [Concomitant]
  9. ZOCOR [Concomitant]
  10. LEXOMIL (BROMAZEPAM) [Concomitant]
  11. PIASCLEDINE (PERSEAE OLEUM/SOYA OIL) [Concomitant]
  12. ACETAMINOPHEN [Concomitant]
  13. STILNOX (ZOLPIDEM) [Concomitant]

REACTIONS (2)
  - HYPOKALAEMIA [None]
  - HYPONATRAEMIA [None]
